FAERS Safety Report 21415808 (Version 3)
Quarter: 2023Q1

REPORT INFORMATION
  Report Type: Spontaneous
  Country: JP (occurrence: JP)
  Receive Date: 20221006
  Receipt Date: 20230103
  Transmission Date: 20230417
  Serious: Yes (Life-Threatening, Other)
  Sender: FDA-Public Use
  Company Number: JP-BRISTOL-MYERS SQUIBB COMPANY-2022-114988

PATIENT
  Age: 66 Year
  Sex: Male
  Weight: 66 kg

DRUGS (3)
  1. YERVOY [Suspect]
     Active Substance: IPILIMUMAB
     Indication: Renal cancer
     Dosage: NUMBER OF DOSES: 4
     Route: 041
     Dates: start: 20210510, end: 20210712
  2. OPDIVO [Suspect]
     Active Substance: NIVOLUMAB
     Indication: Renal cancer
     Dosage: NUMBER OF DOSES: 10
     Route: 041
     Dates: start: 20210510, end: 20211220
  3. VOTRIENT [Suspect]
     Active Substance: PAZOPANIB HYDROCHLORIDE
     Indication: Renal cancer
     Dosage: NUMBER OF DOSES: 1
     Route: 048
     Dates: start: 20220117, end: 20220228

REACTIONS (3)
  - Vanishing bile duct syndrome [Recovered/Resolved]
  - Malignant neoplasm progression [Unknown]
  - Liver disorder [Unknown]

NARRATIVE: CASE EVENT DATE: 20220302
